FAERS Safety Report 9860621 (Version 1)
Quarter: 2014Q1

REPORT INFORMATION
  Report Type: Spontaneous
  Country: US (occurrence: US)
  Receive Date: 20140202
  Receipt Date: 20140202
  Transmission Date: 20141002
  Serious: No
  Sender: FDA-Public Use
  Company Number: US-ALLERGAN-1300191US

PATIENT
  Age: 72 Year
  Sex: Female

DRUGS (2)
  1. BOTOX COSMETIC [Suspect]
     Indication: SKIN WRINKLING
     Dosage: 10 UNITS, SINGLE
     Route: 030
     Dates: start: 20130104, end: 20130104
  2. COQ-10 [Concomitant]
     Indication: NUTRITIONAL SUPPLEMENTATION
     Dosage: 200 MG, QD
     Route: 048

REACTIONS (1)
  - Injection site pain [Recovered/Resolved]
